FAERS Safety Report 9369461 (Version 1)
Quarter: 2013Q2

REPORT INFORMATION
  Report Type: Spontaneous
  Country: US (occurrence: None)
  Receive Date: 20130625
  Receipt Date: 20130625
  Transmission Date: 20140414
  Serious: Yes (Hospitalization)
  Sender: FDA-Public Use
  Company Number: None

PATIENT
  Age: 68 Year
  Sex: Female
  Weight: 70.76 kg

DRUGS (4)
  1. ZOLPIDEM [Suspect]
     Indication: INSOMNIA
     Route: 048
     Dates: start: 20130521, end: 20130522
  2. PRAVASTATIN [Concomitant]
  3. CENTRUM SILVER VIT. [Concomitant]
  4. TUMS FOR CALCIUM [Concomitant]

REACTIONS (5)
  - Cold sweat [None]
  - Syncope [None]
  - Fall [None]
  - Haemorrhage [None]
  - Memory impairment [None]
